FAERS Safety Report 6025424-0 (Version None)
Quarter: 2008Q4

REPORT INFORMATION
  Report Type: 
  Country: None (occurrence: None)
  Receive Date: 20081219
  Receipt Date: 20081210
  Transmission Date: 20090506
  Serious: Yes (Death)
  Sender: FDA-Public Use
  Company Number: THYM-1000862

PATIENT
  Age: 2 Year

DRUGS (5)
  1. THYMOGLOBULIN [Suspect]
     Indication: CORD BLOOD TRANSPLANT THERAPY
     Dosage: 2.5 MG/KG, QD, INTRAVENOUS
     Route: 042
  2. CYCLOSPORINE [Suspect]
     Indication: CORD BLOOD TRANSPLANT THERAPY
     Dosage: 5 MG/KG, QD, INTRAVENOUS
     Route: 042
  3. CYCLOPHOSPHAMIDE [Suspect]
     Indication: CORD BLOOD TRANSPLANT THERAPY
     Dosage: 60 MG/KG, BID, INTRAVENOUS
     Route: 042
  4. FLUDARABINE PHOSPHATE [Suspect]
     Indication: CORD BLOOD TRANSPLANT THERAPY
     Dosage: 30 MG/KG, QD, INTRAVENOUS
     Route: 042
  5. TREOSULFAN (TREOSULFAN) [Suspect]
     Indication: CORD BLOOD TRANSPLANT THERAPY
     Dosage: 36 G, QD, INTRAVENOUS
     Route: 042

REACTIONS (3)
  - ACUTE GRAFT VERSUS HOST DISEASE [None]
  - ADENOVIRAL HEPATITIS [None]
  - EVANS SYNDROME [None]
